FAERS Safety Report 10535317 (Version 2)
Quarter: 2014Q4

REPORT INFORMATION
  Report Type: Spontaneous
  Country: PE (occurrence: PE)
  Receive Date: 20141022
  Receipt Date: 20141027
  Transmission Date: 20150529
  Serious: Yes (Hospitalization)
  Sender: FDA-Public Use
  Company Number: PE-GLAXOSMITHKLINE-PE2014GSK006237

PATIENT
  Age: 43 Year
  Sex: Male

DRUGS (3)
  1. VENTOLIN HFA [Suspect]
     Active Substance: ALBUTEROL SULFATE
     Indication: WHEEZING
     Dosage: 2 PUFF(S), QID
  2. VENTOLIN HFA [Suspect]
     Active Substance: ALBUTEROL SULFATE
     Indication: BRONCHIAL OBSTRUCTION
     Dosage: 2 PUFF(S), 6D
     Route: 055
     Dates: start: 20141010
  3. DEXAMETASONA [Suspect]
     Active Substance: DEXAMETHASONE
     Indication: BRONCHIAL OBSTRUCTION
     Dosage: 4 MG, BID
     Route: 048

REACTIONS (2)
  - Anxiety [Unknown]
  - Blood pressure increased [Recovered/Resolved]

NARRATIVE: CASE EVENT DATE: 20141011
